FAERS Safety Report 5191546-X (Version None)
Quarter: 2006Q4

REPORT INFORMATION
  Report Type: 
  Country: None (occurrence: None)
  Receive Date: 20061219
  Receipt Date: 20061205
  Transmission Date: 20070319
  Serious: Yes (Hospitalization)
  Sender: FDA-Public Use
  Company Number: 2006PV023889

PATIENT
  Age: 55 Year
  Sex: Female
  Weight: 102.0593 kg

DRUGS (7)
  1. SYMLIN [Suspect]
     Indication: DIABETES MELLITUS NON-INSULIN-DEPENDENT
     Dosage: 120 MCG; TID; SC; SEE IMAGE
     Route: 058
     Dates: start: 20060101, end: 20060101
  2. SYMLIN [Suspect]
     Indication: DIABETES MELLITUS NON-INSULIN-DEPENDENT
     Dosage: 120 MCG; TID; SC; SEE IMAGE
     Route: 058
     Dates: start: 20060101
  3. HUMALOG [Concomitant]
  4. LANTUS [Concomitant]
  5. SYNTHROID [Concomitant]
  6. ADVAIR DISKUS 100/50 [Concomitant]
  7. ASPIRIN [Concomitant]

REACTIONS (10)
  - CARDIAC FAILURE CONGESTIVE [None]
  - CHEST PAIN [None]
  - CONDITION AGGRAVATED [None]
  - CORONARY ARTERY DISEASE [None]
  - DIASTOLIC DYSFUNCTION [None]
  - DYSLIPIDAEMIA [None]
  - DYSPNOEA [None]
  - DYSSTASIA [None]
  - HYPERHIDROSIS [None]
  - WEIGHT INCREASED [None]
